FAERS Safety Report 9411482 (Version 2)
Quarter: 2014Q1

REPORT INFORMATION
  Report Type: Other
  Country: GB (occurrence: GB)
  Receive Date: 20130722
  Receipt Date: 20140305
  Transmission Date: 20141002
  Serious: Yes (Death)
  Sender: FDA-Public Use
  Company Number: GB-SUN PHARMACEUTICAL INDUSTRIES LTD-2013SUN01038

PATIENT
  Age: 69 Year
  Sex: Female

DRUGS (9)
  1. OLANZAPINE 10 MG TABLETS [Suspect]
     Indication: PRODUCT USED FOR UNKNOWN INDICATION
     Dosage: 10 MG, OD
     Route: 065
  2. SERTRALINE/DESMETHYLSERTRALINE [Suspect]
     Indication: PRODUCT USED FOR UNKNOWN INDICATION
     Dosage: 150 MG, OD
     Route: 065
  3. AMLODIPINE [Concomitant]
     Dosage: 5 MG, OD
  4. ASPIRIN [Concomitant]
     Dosage: 75 MG, OD
  5. CALCICHEW [Concomitant]
  6. CARBIMAZOLE [Concomitant]
     Dosage: 5 MG, OD
  7. DIAZEPAM [Concomitant]
     Dosage: 1 MG, OD
  8. SIMVASTATIN [Concomitant]
     Dosage: 40 MG, OD
  9. DONEPEZIL [Concomitant]

REACTIONS (4)
  - Death [Fatal]
  - Fall [Unknown]
  - Drug level increased [Unknown]
  - Overdose [Unknown]
